FAERS Safety Report 5677448-0 (Version None)
Quarter: 2008Q1

REPORT INFORMATION
  Report Type: 
  Country: None (occurrence: None)
  Receive Date: 20080324
  Receipt Date: 20080321
  Transmission Date: 20080703
  Serious: Yes (Death, Hospitalization, Other)
  Sender: FDA-Public Use
  Company Number: US-ASTRAZENECA-2008UW05768

PATIENT
  Sex: Female
  Weight: 49.5 kg

DRUGS (1)
  1. FASLODEX [Suspect]
     Dosage: 250MG EVERY 28 DAYS
     Route: 030
     Dates: start: 20071025, end: 20071127

REACTIONS (8)
  - ABDOMINAL PAIN [None]
  - BLOOD ALBUMIN DECREASED [None]
  - BLOOD GLUCOSE INCREASED [None]
  - DISEASE PROGRESSION [None]
  - LYMPHOPENIA [None]
  - NAUSEA [None]
  - OEDEMA [None]
  - SMALL INTESTINAL OBSTRUCTION [None]
